FAERS Safety Report 26092463 (Version 1)
Quarter: 2025Q4

REPORT INFORMATION
  Report Type: Spontaneous
  Country: EU (occurrence: EU)
  Receive Date: 20251126
  Receipt Date: 20251126
  Transmission Date: 20260118
  Serious: Yes (Other)
  Sender: NOVARTIS
  Company Number: None

PATIENT
  Age: 51 Year
  Sex: Female
  Weight: 76 kg

DRUGS (3)
  1. MYFORTIC [Suspect]
     Active Substance: MYCOPHENOLATE SODIUM
     Indication: Systemic sclerosis pulmonary
     Dosage: 360 MG, Q12H (MYCOFENOLZUUR TABLET MSR 360MG) (2X PER DAG 1 STUK)
     Route: 048
     Dates: start: 202410, end: 20250616
  2. HERBALS\PLANTAGO OVATA LEAF [Concomitant]
     Active Substance: HERBALS\PLANTAGO OVATA LEAF
     Indication: Product used for unknown indication
     Dosage: UNK (ZAKJE (GRANULAAT), 3,25 G (GRAM))
     Route: 048
  3. OMEPRAZOLE [Concomitant]
     Active Substance: OMEPRAZOLE
     Indication: Product used for unknown indication
     Dosage: UNK (MAAGSAPRESISTENTE CAPSULE, 20 MG (MILLIGRAM))
     Route: 048

REACTIONS (1)
  - Thrombophlebitis [Recovering/Resolving]
